FAERS Safety Report 5989438-9 (Version None)
Quarter: 2008Q4

REPORT INFORMATION
  Report Type: 
  Country: None (occurrence: None)
  Receive Date: 20081210
  Receipt Date: 20081203
  Transmission Date: 20090506
  Serious: Yes (Other)
  Sender: FDA-Public Use
  Company Number: PR-ABBOTT-08P-131-0491493-00

PATIENT
  Sex: Female
  Weight: 65.83 kg

DRUGS (1)
  1. HUMIRA [Suspect]
     Indication: RHEUMATOID ARTHRITIS
     Dosage: 1 SYRINGE
     Route: 058

REACTIONS (2)
  - HODGKIN'S DISEASE [None]
  - INGUINAL MASS [None]
